FAERS Safety Report 10936643 (Version 1)
Quarter: 2015Q1

REPORT INFORMATION
  Report Type: Spontaneous
  Country: US (occurrence: None)
  Receive Date: 20150212
  Receipt Date: 20150212
  Transmission Date: 20150721
  Serious: No
  Sender: FDA-Public Use
  Company Number: TPA2011A00348

PATIENT
  Age: 41 Year
  Sex: Male
  Weight: 120.2 kg

DRUGS (4)
  1. ULORIC [Suspect]
     Active Substance: FEBUXOSTAT
     Indication: GOUT
     Route: 048
     Dates: start: 201012
  2. COLCHICINE (COLCHICINE) [Concomitant]
     Active Substance: COLCHICINE
  3. METFORMIN ER (METFORMIN) [Concomitant]
  4. ALLOPURINOL (ALLOPURINOL) [Concomitant]
     Active Substance: ALLOPURINOL

REACTIONS (4)
  - Rash [None]
  - Balance disorder [None]
  - Gout [None]
  - Vision blurred [None]
